FAERS Safety Report 4450416-2 (Version None)
Quarter: 2004Q3

REPORT INFORMATION
  Report Type: 
  Country: None (occurrence: None)
  Receive Date: 20040902
  Receipt Date: 20040823
  Transmission Date: 20050211
  Serious: Yes (Hospitalization)
  Sender: FDA-Public Use
  Company Number: BRO-007705

PATIENT
  Age: 48 Year
  Sex: Female

DRUGS (1)
  1. IOPAMIDOL-300 [Suspect]
     Indication: SPINAL MYELOGRAM
     Dosage: 8 ML
     Route: 037
     Dates: start: 20040818, end: 20040818

REACTIONS (10)
  - ASTHENIA [None]
  - CONJUNCTIVAL OEDEMA [None]
  - CYANOSIS [None]
  - DRUG TOXICITY [None]
  - DYSPNOEA [None]
  - GRAND MAL CONVULSION [None]
  - INCOHERENT [None]
  - LOSS OF CONSCIOUSNESS [None]
  - MEMORY IMPAIRMENT [None]
  - PROCEDURAL COMPLICATION [None]
